FAERS Safety Report 19701459 (Version 1)
Quarter: 2021Q3

REPORT INFORMATION
  Report Type: Spontaneous
  Country: CA (occurrence: CA)
  Receive Date: 20210814
  Receipt Date: 20210814
  Transmission Date: 20211014
  Serious: Yes (Other)
  Sender: FDA-Public Use
  Company Number: CA-TEVA-2021-CA-1941041

PATIENT
  Age: 14 Year
  Sex: Female
  Weight: 41 kg

DRUGS (10)
  1. LEVOFLOXACIN. [Suspect]
     Active Substance: LEVOFLOXACIN
     Indication: INFECTIVE PULMONARY EXACERBATION OF CYSTIC FIBROSIS
     Dosage: 375 MILLIGRAM DAILY;
     Route: 048
  2. OMEPRAZOLE. [Concomitant]
     Active Substance: OMEPRAZOLE
     Route: 065
  3. VIOKASE [Concomitant]
     Active Substance: PANCRELIPASE
     Route: 065
  4. MULTIVITAMINE(S) [Concomitant]
     Active Substance: VITAMINS
     Route: 065
  5. SALBUTAMOL [Concomitant]
     Active Substance: ALBUTEROL
     Route: 065
  6. COTAZYM ECS [Concomitant]
     Route: 065
  7. INSULIN GLARGINE [Concomitant]
     Active Substance: INSULIN GLARGINE
     Route: 065
  8. SALINE [Concomitant]
     Active Substance: SODIUM CHLORIDE
     Route: 065
  9. MELATONIN [Concomitant]
     Active Substance: MELATONIN
     Route: 065
  10. PULMOZYME [Concomitant]
     Active Substance: DORNASE ALFA
     Route: 065

REACTIONS (4)
  - Joint swelling [Recovered/Resolved]
  - Pain [Recovered/Resolved]
  - Rash macular [Recovered/Resolved]
  - Arthralgia [Recovered/Resolved]
